FAERS Safety Report 5283825-2 (Version None)
Quarter: 2007Q2

REPORT INFORMATION
  Report Type: 
  Country: None (occurrence: None)
  Receive Date: 20070402
  Receipt Date: 20070322
  Transmission Date: 20071010
  Serious: Yes (Hospitalization)
  Sender: FDA-Public Use
  Company Number: US-SHR-US-2007-008328

PATIENT
  Age: 56 Year
  Sex: Female
  Weight: 72.562 kg

DRUGS (11)
  1. BETASERON [Suspect]
     Indication: PROGRESSIVE MULTIPLE SCLEROSIS
     Dosage: 8 MIU, EVERY 2D
     Route: 058
     Dates: start: 20030302
  2. NEURONTIN [Concomitant]
     Dosage: 300 MG, 2X/DAY
  3. BACLOFEN [Concomitant]
     Dosage: UNK, CONT
  4. BISOPRIL-HCTZ [Concomitant]
     Dosage: 2.5/6.25MG/DAY
  5. OXYBUTYN [Concomitant]
     Dosage: 5 MG/D, UNK
  6. DULOXETIN (CYMBALTA) [Concomitant]
     Dosage: 60 MG/D, UNK
  7. TRAMADOL HCL [Concomitant]
  8. OXYGEN [Concomitant]
     Dosage: AT NIGHT
     Route: 055
  9. VITAMIN B-12 [Concomitant]
     Dosage: 10 MG, UNK
  10. VITAMIN B6 [Concomitant]
     Dosage: 25 MG, UNK
  11. FABB [Concomitant]
     Dosage: 22 MG/D, UNK

REACTIONS (3)
  - CELLULITIS [None]
  - MALAISE [None]
  - SEPSIS [None]
